FAERS Safety Report 5478684-9 (Version None)
Quarter: 2007Q4

REPORT INFORMATION
  Report Type: 
  Country: None (occurrence: None)
  Receive Date: 20071005
  Receipt Date: 20070925
  Transmission Date: 20080405
  Serious: Yes (Other)
  Sender: FDA-Public Use
  Company Number: FR-ABBOTT-07P-056-0374003-00

PATIENT
  Sex: Female
  Weight: 35 kg

DRUGS (6)
  1. HUMIRA [Suspect]
     Indication: JUVENILE ARTHRITIS
     Route: 058
     Dates: start: 20070401, end: 20070601
  2. HUMIRA [Suspect]
     Route: 058
     Dates: start: 20070101
  3. PREDNISONE [Concomitant]
     Indication: ARTHRITIS
     Route: 048
  4. METHOTREXATE [Concomitant]
     Indication: ARTHRITIS
     Route: 048
     Dates: start: 20040101
  5. RISEDRONATE MONOSODIC [Concomitant]
     Indication: OSTEOPOROSIS
     Route: 048
     Dates: start: 20070101
  6. FOLIC ACID [Concomitant]
     Indication: VITAMIN SUPPLEMENTATION
     Route: 048
     Dates: start: 20040101

REACTIONS (1)
  - WEIGHT INCREASED [None]
